FAERS Safety Report 4765593-3 (Version None)
Quarter: 2005Q3

REPORT INFORMATION
  Report Type: 
  Country: None (occurrence: None)
  Receive Date: 20050908
  Receipt Date: 20050908
  Transmission Date: 20060218
  Serious: Yes (Other)
  Sender: FDA-Public Use
  Company Number: None

PATIENT
  Age: 66 Year
  Sex: Female

DRUGS (4)
  1. ACTOS [Suspect]
     Indication: DIABETES MELLITUS
     Dosage: ONE DAILY
     Dates: start: 20050510
  2. METFORMIN [Concomitant]
  3. NORVASC [Concomitant]
  4. SYNTHROID [Concomitant]

REACTIONS (1)
  - MYALGIA [None]
